FAERS Safety Report 12662272 (Version 2)
Quarter: 2017Q3

REPORT INFORMATION
  Report Type: Report from Study
  Country: None (occurrence: US)
  Receive Date: 20160817
  Receipt Date: 20170904
  Transmission Date: 20171127
  Serious: Yes (Hospitalization, Other)
  Sender: FDA-Public Use
  Company Number: US-ABBVIE-16K-163-1596454-00

PATIENT
  Age: 66 Year
  Sex: Female

DRUGS (1)
  1. HUMIRA [Suspect]
     Active Substance: ADALIMUMAB
     Indication: RHEUMATOID ARTHRITIS
     Route: 058
     Dates: start: 20160304, end: 201603

REACTIONS (3)
  - Rheumatoid arthritis [Unknown]
  - Dyspnoea [Recovered/Resolved]
  - Upper airway obstruction [Recovered/Resolved]

NARRATIVE: CASE EVENT DATE: 201603
